FAERS Safety Report 5590742-7 (Version None)
Quarter: 2008Q1

REPORT INFORMATION
  Report Type: 
  Country: None (occurrence: None)
  Receive Date: 20080114
  Receipt Date: 20080104
  Transmission Date: 20080703
  Serious: Yes (Death)
  Sender: FDA-Public Use
  Company Number: CN-PFIZER INC-2007108275

PATIENT
  Age: 46 Year
  Sex: Male

DRUGS (10)
  1. SOLU-MEDROL [Suspect]
     Indication: ARTHRALGIA
     Dates: start: 20071226, end: 20071226
  2. SOLU-MEDROL [Suspect]
     Indication: MUSCULOSKELETAL PAIN
  3. SOLU-MEDROL [Suspect]
     Indication: RHEUMATOID ARTHRITIS
  4. HYALURONATE SODIUM [Suspect]
     Indication: ARTHRALGIA
     Dates: start: 20071226, end: 20071226
  5. HYALURONATE SODIUM [Suspect]
     Indication: MUSCULOSKELETAL PAIN
  6. HYALURONATE SODIUM [Suspect]
     Indication: RHEUMATOID ARTHRITIS
  7. TRIAMCINOLONE ACETONIDE [Suspect]
     Indication: ARTHRALGIA
     Dates: start: 20071226, end: 20071226
  8. TRIAMCINOLONE ACETONIDE [Suspect]
     Indication: MUSCULOSKELETAL PAIN
  9. TRIAMCINOLONE ACETONIDE [Suspect]
     Indication: RHEUMATOID ARTHRITIS
  10. LIDOCAINE [Suspect]
     Indication: RHEUMATOID ARTHRITIS
     Dates: start: 20071226, end: 20071226

REACTIONS (1)
  - SUDDEN DEATH [None]
